FAERS Safety Report 25887212 (Version 1)
Quarter: 2025Q4

REPORT INFORMATION
  Report Type: Report from Study
  Country: EU (occurrence: EU)
  Receive Date: 20251006
  Receipt Date: 20251006
  Transmission Date: 20260117
  Serious: Yes (Hospitalization)
  Sender: SERVIER
  Company Number: EU-SERVIER-S25013984

PATIENT

DRUGS (13)
  1. PEGASPARGASE [Suspect]
     Active Substance: PEGASPARGASE
     Indication: Acute lymphocytic leukaemia
     Dosage: 2250 IU, D4, D42
     Route: 042
     Dates: start: 20210708, end: 20210820
  2. DEXAMETHASONE [Suspect]
     Active Substance: DEXAMETHASONE
     Indication: Acute lymphocytic leukaemia
     Dosage: 3 MG, TID, D1-D7, D15-D21
     Route: 048
     Dates: start: 20210705, end: 20210725
  3. VINCRISTINE [Suspect]
     Active Substance: VINCRISTINE
     Indication: Acute lymphocytic leukaemia
     Dosage: 1.4 MG, ON D1, D8, D15 AND D42
     Route: 042
     Dates: start: 20210705, end: 20210820
  4. DOXORUBICIN [Suspect]
     Active Substance: DOXORUBICIN
     Indication: Acute lymphocytic leukaemia
     Dosage: 22.5 MG, ON D1, D8 AND D15
     Route: 042
     Dates: start: 20210705, end: 20210719
  5. MERCAPTOPURINE [Suspect]
     Active Substance: MERCAPTOPURINE
     Indication: Acute lymphocytic leukaemia
     Dosage: 50 MG, ON D29-D44
     Route: 048
     Dates: start: 20210806, end: 20210822
  6. CYCLOPHOSPHAMIDE [Suspect]
     Active Substance: CYCLOPHOSPHAMIDE
     Indication: Acute lymphocytic leukaemia
     Dosage: 860 MG, ON D29
     Route: 042
     Dates: start: 20210806, end: 20210806
  7. CYTARABINE [Suspect]
     Active Substance: CYTARABINE
     Indication: Acute lymphocytic leukaemia
     Dosage: UNK, D4, D32
     Route: 037
     Dates: start: 20210708, end: 20210809
  8. CYTARABINE [Suspect]
     Active Substance: CYTARABINE
     Dosage: 65 MG, ON D30-D33, D37-D40
     Route: 042
     Dates: start: 20210809, end: 20210819
  9. METHOTREXATE [Suspect]
     Active Substance: METHOTREXATE
     Indication: Acute lymphocytic leukaemia
     Dosage: 12 MG, D4, D32
     Route: 037
     Dates: start: 20210708, end: 20210809
  10. HYDROCORTISONE [Suspect]
     Active Substance: HYDROCORTISONE
     Indication: Acute lymphocytic leukaemia
     Dosage: UNK, D4, D32
     Route: 037
     Dates: start: 20210708, end: 20210809
  11. ACYCLOVIR [Concomitant]
     Active Substance: ACYCLOVIR
     Indication: Prophylaxis
     Dosage: 800 MG, OTHER
     Route: 048
     Dates: start: 202009
  12. COTRIMOXAZOLE [Concomitant]
     Active Substance: SULFAMETHOXAZOLE\TRIMETHOPRIM
     Indication: Antibiotic therapy
     Dosage: 600 MG, OTHER
     Route: 065
     Dates: start: 202009
  13. SODIUM BICARBONATE [Concomitant]
     Active Substance: SODIUM BICARBONATE
     Indication: Prophylaxis
     Dosage: UNK
     Route: 048
     Dates: start: 202009

REACTIONS (1)
  - Febrile bone marrow aplasia [Recovered/Resolved]

NARRATIVE: CASE EVENT DATE: 20210903
